FAERS Safety Report 16290612 (Version 1)
Quarter: 2019Q2

REPORT INFORMATION
  Report Type: Other
  Country: CA (occurrence: CA)
  Receive Date: 20190509
  Receipt Date: 20190509
  Transmission Date: 20190711
  Serious: Yes (Other)
  Sender: FDA-Public Use
  Company Number: CA-APOTEX-2019AP013266

PATIENT
  Age: 70 Year
  Sex: Female

DRUGS (1)
  1. MOXIFLOXACIN. [Suspect]
     Active Substance: MOXIFLOXACIN
     Indication: PRODUCT USED FOR UNKNOWN INDICATION
     Dosage: UNK
     Route: 065

REACTIONS (10)
  - Stomatitis [Unknown]
  - Headache [Unknown]
  - Haemorrhage [Unknown]
  - Product substitution issue [Unknown]
  - Dizziness [Unknown]
  - Mouth haemorrhage [Unknown]
  - Sinus pain [Unknown]
  - Pruritus [Unknown]
  - Nausea [Unknown]
  - Vision blurred [Unknown]
